FAERS Safety Report 11420877 (Version 5)
Quarter: 2017Q1

REPORT INFORMATION
  Report Type: Report from Study
  Country: CA (occurrence: CA)
  Receive Date: 20150826
  Receipt Date: 20170227
  Transmission Date: 20170428
  Serious: Yes (Other)
  Sender: FDA-Public Use
  Company Number: CA-UCBSA-2015024434

PATIENT
  Age: 60 Year
  Sex: Female
  Weight: 66 kg

DRUGS (6)
  1. CERTOLIZUMAB PEGOL ASP [Suspect]
     Active Substance: CERTOLIZUMAB PEGOL
     Indication: AXIAL SPONDYLOARTHRITIS
     Dosage: 400 MG, EV 2 WEEKS(QOW)
     Route: 058
     Dates: start: 20141218, end: 20150115
  2. CORTISONE [Concomitant]
     Active Substance: CORTISONE\HYDROCORTISONE
     Indication: PRODUCT USED FOR UNKNOWN INDICATION
     Dosage: 1% CREAM
     Dates: start: 201508
  3. DESONIDE. [Concomitant]
     Active Substance: DESONIDE
     Indication: PSORIASIS
  4. COMBANTRIN [Concomitant]
     Active Substance: PYRANTEL PAMOATE
     Indication: PRODUCT USED FOR UNKNOWN INDICATION
     Dosage: 125MG 6 TABLETS ALL AT ONCE
     Dates: start: 201508
  5. CERTOLIZUMAB PEGOL ASP [Suspect]
     Active Substance: CERTOLIZUMAB PEGOL
     Dosage: 200 MG, EV 2 WEEKS(QOW)
     Route: 058
     Dates: start: 20150129
  6. CANESTEN [Concomitant]
     Active Substance: CLOTRIMAZOLE
     Indication: PRODUCT USED FOR UNKNOWN INDICATION
     Dosage: UNK
     Dates: start: 201508

REACTIONS (5)
  - Arthralgia [Recovered/Resolved]
  - Psoriasis [Not Recovered/Not Resolved]
  - Infection parasitic [Not Recovered/Not Resolved]
  - Rash [Not Recovered/Not Resolved]
  - Anal pruritus [Not Recovered/Not Resolved]

NARRATIVE: CASE EVENT DATE: 201507
